FAERS Safety Report 8871368 (Version 1)
Quarter: 2012Q4

REPORT INFORMATION
  Report Type: 
  Country: GB (occurrence: GB)
  Receive Date: 20121023
  Receipt Date: 20121023
  Transmission Date: 20130627
  Serious: Yes (Hospitalization)
  Sender: FDA-Public Use
  Company Number: GB-ELI_LILLY_AND_COMPANY-GB201210003390

PATIENT
  Age: 71 Year
  Sex: Female

DRUGS (8)
  1. BYDUREON [Suspect]
     Indication: DIABETES MELLITUS
     Dosage: 2 mg, unknown
     Route: 058
     Dates: start: 20120801, end: 20120903
  2. ALLOPURINOL [Concomitant]
  3. ASPIRIN [Concomitant]
  4. ATENOLOL [Concomitant]
  5. DOXAZOSIN [Concomitant]
  6. FUROSEMIDE [Concomitant]
  7. NOVOMIX [Concomitant]
  8. RAMIPRIL [Concomitant]

REACTIONS (3)
  - Cholecystitis [Recovering/Resolving]
  - Abdominal pain [Recovering/Resolving]
  - Off label use [Recovered/Resolved]
